FAERS Safety Report 11362125 (Version 2)
Quarter: 2015Q4

REPORT INFORMATION
  Report Type: Report from Study
  Country: MX (occurrence: MX)
  Receive Date: 20150810
  Receipt Date: 20151103
  Transmission Date: 20160304
  Serious: Yes (Other)
  Sender: FDA-Public Use
  Company Number: PHHY2014MX141243

PATIENT
  Age: 28 Year
  Sex: Female

DRUGS (5)
  1. FOLIC ACID. [Suspect]
     Active Substance: FOLIC ACID
     Indication: PREGNANCY
     Dosage: 1 DF (DURING THE NIGHT)
     Route: 065
  2. ALEPSAL [Suspect]
     Active Substance: CAFFEINE\PHENOBARBITAL
     Indication: ANXIETY
     Dosage: 1 DF, QD (AROUND 1 AND HALF YEAR)
     Route: 065
  3. ALEPSAL [Suspect]
     Active Substance: CAFFEINE\PHENOBARBITAL
     Dosage: 2 DF, QD (1 AT MORNING AND 1 AT NIGHT) (SAME DATE THAT SHE HAD THE CRISES)
     Route: 065
  4. ALEPSAL [Suspect]
     Active Substance: CAFFEINE\PHENOBARBITAL
     Dosage: 1 DF, QD (WHEN THE PREGNANCY FINISHED)
     Route: 065
  5. TRILEPTAL [Suspect]
     Active Substance: OXCARBAZEPINE
     Indication: EPILEPSY
     Dosage: 1 DF, BID (1 AT MORNING AND 1 AT NIGHT)
     Route: 048

REACTIONS (7)
  - Fear [Recovered/Resolved]
  - Dizziness [Recovered/Resolved]
  - Normal newborn [Unknown]
  - Epilepsy [Recovered/Resolved]
  - Maternal exposure during pregnancy [Unknown]
  - Delivery [Unknown]
  - Tachycardia [Recovered/Resolved]
